FAERS Safety Report 14390195 (Version 1)
Quarter: 2018Q1

REPORT INFORMATION
  Report Type: Spontaneous
  Country: CA (occurrence: CA)
  Receive Date: 20180116
  Receipt Date: 20180116
  Transmission Date: 20180509
  Serious: Yes (Death, Hospitalization, Other)
  Sender: FDA-Public Use
  Company Number: CA-ALEMBIC PHARMACUETICALS LIMITED-2018SCAL000009

PATIENT

DRUGS (7)
  1. ALCOHOL. [Suspect]
     Active Substance: ALCOHOL
     Indication: PRODUCT USED FOR UNKNOWN INDICATION
     Dosage: UNSPECIFIED DOSE
     Route: 048
  2. CITALOPRAM [Concomitant]
     Active Substance: CITALOPRAM HYDROBROMIDE
     Indication: PRODUCT USED FOR UNKNOWN INDICATION
     Dosage: 20 MG, OD
  3. ACETYLSALICYLIC ACID [Suspect]
     Active Substance: ASPIRIN
     Indication: PRODUCT USED FOR UNKNOWN INDICATION
     Dosage: EQUIVALENT TO 15 PILLS OF UNSPECIFIED STRENGTH
     Route: 048
  4. ACETAMINOPHEN. [Suspect]
     Active Substance: ACETAMINOPHEN
     Indication: PRODUCT USED FOR UNKNOWN INDICATION
     Dosage: EQUIVALENT OT 40 PILLS OF UNSPECIFIED STRENGTH
     Route: 048
  5. QUETIAPINE FUMARATE. [Suspect]
     Active Substance: QUETIAPINE FUMARATE
     Indication: PRODUCT USED FOR UNKNOWN INDICATION
     Dosage: EQUIVALENT TO 20 PILLS OF 25 MG
     Route: 048
  6. ATOMOXETINE. [Concomitant]
     Active Substance: ATOMOXETINE HYDROCHLORIDE
     Indication: PRODUCT USED FOR UNKNOWN INDICATION
     Dosage: 60 MG, OD
  7. ISONIAZID. [Concomitant]
     Active Substance: ISONIAZID
     Indication: PRODUCT USED FOR UNKNOWN INDICATION
     Dosage: 300 MG, OD

REACTIONS (27)
  - Myocarditis [Fatal]
  - Cardiac failure [Fatal]
  - Cardiac arrest [Fatal]
  - Hepatic failure [Unknown]
  - Agitation [Unknown]
  - Nausea [Unknown]
  - Eosinopenia [Unknown]
  - Hepatic encephalopathy [Unknown]
  - Myalgia [Unknown]
  - Pericardial effusion [Unknown]
  - Completed suicide [Fatal]
  - Pulmonary congestion [Unknown]
  - Renal tubular necrosis [Unknown]
  - Neutrophilia [Unknown]
  - Pulmonary oedema [Unknown]
  - Oedema peripheral [Unknown]
  - Anaemia [Unknown]
  - Multiple organ dysfunction syndrome [Unknown]
  - Hepatitis [Unknown]
  - Pulmonary alveolar haemorrhage [Unknown]
  - Effusion [Unknown]
  - Overdose [Fatal]
  - Face oedema [Unknown]
  - Atrial fibrillation [Unknown]
  - Liver injury [Unknown]
  - Seizure [Unknown]
  - Pleural effusion [Unknown]
